FAERS Safety Report 6367133-4 (Version None)
Quarter: 2009Q3

REPORT INFORMATION
  Report Type: 
  Country: None (occurrence: None)
  Receive Date: 20090921
  Receipt Date: 20090709
  Transmission Date: 20100115
  Serious: No
  Sender: FDA-Public Use
  Company Number: US-BAYER-200926484NA

PATIENT
  Sex: Female
  Weight: 58 kg

DRUGS (1)
  1. MIRENA [Suspect]
     Indication: CONTRACEPTION
     Dosage: CONTINUOUS
     Route: 015
     Dates: start: 20080101

REACTIONS (9)
  - ABDOMINAL PAIN [None]
  - ARTHRALGIA [None]
  - HEADACHE [None]
  - IUCD COMPLICATION [None]
  - LOSS OF LIBIDO [None]
  - MOOD SWINGS [None]
  - NIGHT SWEATS [None]
  - SUPPRESSED LACTATION [None]
  - WEIGHT INCREASED [None]
